FAERS Safety Report 5944350-6 (Version None)
Quarter: 2008Q4

REPORT INFORMATION
  Report Type: 
  Country: None (occurrence: None)
  Receive Date: 20081105
  Receipt Date: 20081027
  Transmission Date: 20090506
  Serious: Yes (Death, Disabling, Other)
  Sender: FDA-Public Use
  Company Number: SPV1-2008-02283

PATIENT
  Age: 42 Year
  Sex: Female

DRUGS (5)
  1. FOSRENOL [Suspect]
  2. GADOLINIUM (GADOLINIUM) [Suspect]
  3. EPOGEN [Concomitant]
  4. IRON (IRON) [Concomitant]
  5. PHOSLO [Concomitant]

REACTIONS (4)
  - BLINDNESS [None]
  - CEREBROVASCULAR ACCIDENT [None]
  - CONFUSIONAL STATE [None]
  - NEPHROGENIC SYSTEMIC FIBROSIS [None]
